FAERS Safety Report 11788778 (Version 1)
Quarter: 2015Q4

REPORT INFORMATION
  Report Type: Spontaneous
  Country: US (occurrence: None)
  Receive Date: 20151130
  Receipt Date: 20151130
  Transmission Date: 20160305
  Serious: Yes (Disabling)
  Sender: FDA-Public Use
  Company Number: None

PATIENT
  Age: 59 Year
  Sex: Female
  Weight: 78.02 kg

DRUGS (1)
  1. CIPROFLOXACIN HCL 500 MG [Suspect]
     Active Substance: CIPROFLOXACIN HYDROCHLORIDE
     Indication: URINARY TRACT INFECTION
     Dosage: 6 PILLS TWICE DAILY TAKEN BY MOUTH
     Route: 048
     Dates: start: 20151011, end: 20151012

REACTIONS (7)
  - Asthenia [None]
  - Tendon pain [None]
  - Paraesthesia [None]
  - Neuropathy peripheral [None]
  - Gait disturbance [None]
  - Hypoaesthesia [None]
  - Tendon disorder [None]

NARRATIVE: CASE EVENT DATE: 20151011
